FAERS Safety Report 7205495-6 (Version None)
Quarter: 2010Q4

REPORT INFORMATION
  Report Type: 
  Country: None (occurrence: None)
  Receive Date: 20101231
  Receipt Date: 20101220
  Transmission Date: 20110411
  Serious: Yes (Other)
  Sender: FDA-Public Use
  Company Number: US-SANOFI-AVENTIS-2010SA076958

PATIENT
  Age: 79 Year
  Sex: Male

DRUGS (2)
  1. PLAVIX [Suspect]
     Route: 048
     Dates: start: 20090101
  2. PLAVIX [Suspect]
     Route: 048

REACTIONS (2)
  - ATRIAL FIBRILLATION [None]
  - NASOPHARYNGITIS [None]
